FAERS Safety Report 13518621 (Version 1)
Quarter: 2017Q2

REPORT INFORMATION
  Report Type: Spontaneous
  Country: FR (occurrence: FR)
  Receive Date: 20170505
  Receipt Date: 20170505
  Transmission Date: 20170830
  Serious: Yes (Life-Threatening)
  Sender: FDA-Public Use
  Company Number: FR-JNJFOC-20170504295

PATIENT
  Age: 47 Year
  Sex: Female

DRUGS (3)
  1. XARELTO [Suspect]
     Active Substance: RIVAROXABAN
     Indication: SUICIDE ATTEMPT
     Route: 048
     Dates: start: 20170416, end: 20170416
  2. SERESTA [Suspect]
     Active Substance: OXAZEPAM
     Indication: SUICIDE ATTEMPT
     Route: 048
     Dates: start: 20170416, end: 20170416
  3. FLUINDIONE [Suspect]
     Active Substance: FLUINDIONE
     Indication: SUICIDE ATTEMPT
     Route: 048
     Dates: start: 20170416, end: 20170416

REACTIONS (2)
  - Prothrombin time ratio decreased [Recovered/Resolved]
  - Activated partial thromboplastin time prolonged [Recovered/Resolved]

NARRATIVE: CASE EVENT DATE: 20170416
